FAERS Safety Report 8156705-2 (Version None)
Quarter: 2012Q1

REPORT INFORMATION
  Report Type: 
  Country: None (occurrence: None)
  Receive Date: 20120221
  Receipt Date: 20120221
  Transmission Date: 20120608
  Serious: Yes (Hospitalization)
  Sender: FDA-Public Use
  Company Number: None

PATIENT
  Sex: Male
  Weight: 55 kg

DRUGS (3)
  1. CARBOPLATIN [Suspect]
     Dosage: 618 MG
  2. ERBITUX [Suspect]
     Dosage: 628 MG
  3. TAXOL [Suspect]
     Dosage: 314 MG

REACTIONS (9)
  - CHRONIC OBSTRUCTIVE PULMONARY DISEASE [None]
  - HYPOXIA [None]
  - DYSPHONIA [None]
  - DYSPHAGIA [None]
  - CANDIDIASIS [None]
  - RESPIRATORY FAILURE [None]
  - CONDITION AGGRAVATED [None]
  - PNEUMONIA ASPIRATION [None]
  - GENERAL PHYSICAL HEALTH DETERIORATION [None]
